FAERS Safety Report 8822077 (Version 4)
Quarter: 2012Q4

REPORT INFORMATION
  Report Type: 
  Country: FI (occurrence: FI)
  Receive Date: 20121003
  Receipt Date: 20121026
  Transmission Date: 20130627
  Serious: Yes (Other)
  Sender: FDA-Public Use
  Company Number: FI-AMGEN-FINSP2012061503

PATIENT
  Age: 66 Year
  Sex: Female
  Weight: 64 kg

DRUGS (10)
  1. VECTIBIX [Suspect]
     Indication: COLON CANCER METASTATIC
     Dosage: 380 mg, q2wk
     Route: 042
     Dates: start: 20120806, end: 20120820
  2. VECTIBIX [Suspect]
     Indication: METASTASES TO LIVER
  3. VECTIBIX [Suspect]
     Indication: METASTASES TO LUNG
  4. OXALIPLATIN [Suspect]
     Indication: COLON CANCER METASTATIC
     Dosage: 120 mg, per chemo regim
     Route: 042
     Dates: start: 20120806, end: 20120820
  5. FLUOROURACIL [Suspect]
     Indication: COLON CANCER METASTATIC
     Dosage: 700 mg, per chemo regim
     Route: 042
     Dates: start: 20120806, end: 20120820
  6. SEREVENT EVOHALER [Concomitant]
     Indication: ASTHMA
     Dosage: 50 mg, UNK
     Route: 055
     Dates: start: 201108
  7. PROGYNOVA                          /00045401/ [Concomitant]
     Indication: HORMONE REPLACEMENT THERAPY
     Dosage: UNK
     Route: 048
     Dates: start: 201108
  8. IRINOTECAN [Concomitant]
     Indication: COLON CANCER METASTATIC
     Dosage: 390 mg, per chemo regim
     Route: 042
     Dates: start: 20110901
  9. AVASTIN /00848101/ [Concomitant]
     Indication: COLON CANCER METASTATIC
     Dosage: UNK
     Route: 042
     Dates: start: 20110929
  10. ISOVORIN                           /00566702/ [Concomitant]
     Indication: COLON CANCER METASTATIC
     Dosage: 40 mg, UNK
     Route: 042
     Dates: start: 20120806, end: 20120821

REACTIONS (8)
  - Skin necrosis [Not Recovered/Not Resolved]
  - Eye swelling [Unknown]
  - Eye discharge [Unknown]
  - Eczema [Unknown]
  - Drug eruption [Recovering/Resolving]
  - Dermatitis [Recovering/Resolving]
  - Sleep disorder [Unknown]
  - Conjunctivitis [Unknown]
